FAERS Safety Report 16972121 (Version 2)
Quarter: 2019Q4

REPORT INFORMATION
  Report Type: Report from Study
  Country: PL (occurrence: PL)
  Receive Date: 20191029
  Receipt Date: 20191112
  Transmission Date: 20200122
  Serious: Yes (Other)
  Sender: FDA-Public Use
  Company Number: PL-PFIZER INC-2019459712

PATIENT
  Age: 6 Year
  Sex: Male

DRUGS (3)
  1. ELTROMBOPAG [Suspect]
     Active Substance: ELTROMBOPAG
     Indication: BONE MARROW DISORDER
     Dosage: 12.5 MG, DAILY1.04MG/KG)
     Route: 065
  2. FILGRASTIM [Suspect]
     Active Substance: FILGRASTIM
     Indication: BONE MARROW DISORDER
     Dosage: UNK
     Route: 065
  3. EPOETIN BETA [Suspect]
     Active Substance: ERYTHROPOIETIN
     Indication: BONE MARROW DISORDER
     Dosage: UNK
     Route: 065

REACTIONS (2)
  - Cataract [Unknown]
  - Platelet count decreased [Unknown]
